FAERS Safety Report 10697502 (Version 1)
Quarter: 2015Q1

REPORT INFORMATION
  Report Type: Spontaneous
  Country: GB (occurrence: None)
  Receive Date: 20150106
  Receipt Date: 20150106
  Transmission Date: 20150721
  Serious: Yes (Hospitalization, Other)
  Sender: FDA-Public Use
  Company Number: CL-603-2014

PATIENT
  Age: 54 Year
  Sex: Female

DRUGS (2)
  1. METRONIDAZOLE UNK [Suspect]
     Active Substance: METRONIDAZOLE
     Indication: BACTERIAL VAGINOSIS
     Dosage: 1 TABLET TID ORAL
     Route: 048
     Dates: start: 20141118, end: 20141118
  2. ESTRIOL [Suspect]
     Active Substance: ESTRIOL

REACTIONS (4)
  - Headache [None]
  - Disorientation [None]
  - Hallucination [None]
  - Diarrhoea [None]

NARRATIVE: CASE EVENT DATE: 20141118
